FAERS Safety Report 24548212 (Version 2)
Quarter: 2025Q2

REPORT INFORMATION
  Report Type: Spontaneous
  Country: CZ (occurrence: CZ)
  Receive Date: 20241025
  Receipt Date: 20250411
  Transmission Date: 20250716
  Serious: Yes (Other)
  Sender: CELLTRION
  Company Number: CZ-CELLTRION INC.-2023CZ002757

PATIENT

DRUGS (5)
  1. YUFLYMA [Suspect]
     Active Substance: ADALIMUMAB-AATY
     Indication: Product used for unknown indication
     Dates: end: 20221215
  2. YUFLYMA [Suspect]
     Active Substance: ADALIMUMAB-AATY
  3. YUFLYMA [Suspect]
     Active Substance: ADALIMUMAB-AATY
     Dates: end: 20230316
  4. YUFLYMA [Suspect]
     Active Substance: ADALIMUMAB-AATY
     Dates: end: 20240926
  5. YUFLYMA [Suspect]
     Active Substance: ADALIMUMAB-AATY

REACTIONS (8)
  - Pneumothorax [Recovered/Resolved]
  - Polyneuropathy [Recovering/Resolving]
  - Nasopharyngitis [Recovered/Resolved]
  - Urinary tract infection [Recovered/Resolved]
  - Respiratory tract infection [Recovered/Resolved]
  - Influenza [Recovered/Resolved]
  - Oral herpes [Recovered/Resolved]
  - Tonsillitis [Recovered/Resolved]

NARRATIVE: CASE EVENT DATE: 20221108
